FAERS Safety Report 23980306 (Version 2)
Quarter: 2024Q3

REPORT INFORMATION
  Report Type: Report from Study
  Country: CL (occurrence: CL)
  Receive Date: 20240617
  Receipt Date: 20240701
  Transmission Date: 20241017
  Serious: Yes (Other)
  Sender: ROCHE
  Company Number: CL-ROCHE-3579147

PATIENT
  Age: 71 Year
  Sex: Female

DRUGS (4)
  1. AVASTIN [Suspect]
     Active Substance: BEVACIZUMAB
     Indication: Product used for unknown indication
     Dosage: 6 CYCLES
     Route: 042
     Dates: start: 20211108, end: 20240222
  2. FLUOROURACIL [Concomitant]
     Active Substance: FLUOROURACIL
     Route: 042
  3. LEUCOVORIN [Concomitant]
     Active Substance: LEUCOVORIN\LEUCOVORIN CALCIUM
     Indication: Product used for unknown indication
     Route: 042
  4. IRINOTECAN [Concomitant]
     Active Substance: IRINOTECAN
     Indication: Product used for unknown indication
     Route: 042

REACTIONS (3)
  - Renal vein thrombosis [Unknown]
  - Thrombosis [Unknown]
  - Pulmonary mass [Unknown]

NARRATIVE: CASE EVENT DATE: 20240320
